FAERS Safety Report 9364673 (Version 1)
Quarter: 2013Q2

REPORT INFORMATION
  Report Type: Spontaneous
  Country: US (occurrence: US)
  Receive Date: 20130624
  Receipt Date: 20130624
  Transmission Date: 20140414
  Serious: Yes (Other)
  Sender: FDA-Public Use
  Company Number: US-UCBSA-089336

PATIENT
  Sex: Male

DRUGS (6)
  1. CIMZIA [Suspect]
     Route: 064
  2. PREDNISONE [Suspect]
     Indication: CROHN^S DISEASE
     Dosage: DOSE: UNKNOWN
     Route: 064
  3. HUMIRA [Concomitant]
     Route: 064
  4. AZATHIOPRINE [Concomitant]
     Route: 064
  5. CYTOXAN [Concomitant]
     Route: 064
  6. REMICADE [Concomitant]
     Route: 064

REACTIONS (2)
  - Premature baby [Unknown]
  - Foetal exposure during pregnancy [Recovered/Resolved]
